FAERS Safety Report 7067418 (Version 11)
Quarter: 2018Q1

REPORT INFORMATION
  Report Type: Spontaneous
  Country: US (occurrence: US)
  Receive Date: 20090730
  Receipt Date: 20180115
  Transmission Date: 20180509
  Serious: Yes (Other)
  Sender: FDA-Public Use
  Company Number: US-BAYER-200927522NA

PATIENT
  Age: 42 Year
  Sex: Male
  Weight: 74.09 kg

DRUGS (6)
  1. GADOLINIUM IN UNSPECIFIED DRUG [Suspect]
     Active Substance: GADOLINIUM
     Indication: NUCLEAR MAGNETIC RESONANCE IMAGING
     Dosage: UNK UNK, ONCE
     Route: 042
     Dates: start: 2007, end: 2007
  2. NEURONTIN [Concomitant]
     Active Substance: GABAPENTIN
     Dosage: 300 MG AT BEDTIME FOR 3 DAYS AND THEN GRADUAL INCREASE TO THREE TIMES PER DAY
  3. MAGNEVIST [Suspect]
     Active Substance: GADOPENTETATE DIMEGLUMINE
     Indication: LUMBAR RADICULOPATHY
     Dosage: 15 ML, ONCE
     Dates: start: 20081027, end: 20081027
  4. COLCHICINE. [Concomitant]
     Active Substance: COLCHICINE
  5. HYDROCODONE [Concomitant]
     Active Substance: HYDROCODONE
     Dosage: IN SHOULDER
  6. MAGNEVIST [Suspect]
     Active Substance: GADOPENTETATE DIMEGLUMINE
     Indication: NUCLEAR MAGNETIC RESONANCE IMAGING
     Dosage: UNK
     Route: 042
     Dates: start: 2006, end: 2006

REACTIONS (19)
  - Rash papular [None]
  - Procedural hypotension [Not Recovered/Not Resolved]
  - Arthralgia [None]
  - Skin burning sensation [None]
  - Ocular icterus [None]
  - Joint stiffness [None]
  - Blood potassium decreased [Not Recovered/Not Resolved]
  - Nephrectomy [None]
  - Skin disorder [None]
  - Skin disorder [None]
  - Renal tubular disorder [Unknown]
  - Chronic kidney disease [Not Recovered/Not Resolved]
  - Pruritus [None]
  - Rash macular [None]
  - Peau d^orange [None]
  - Pain [None]
  - Nephrogenic systemic fibrosis [None]
  - Renal failure [Not Recovered/Not Resolved]
  - Skin tightness [None]

NARRATIVE: CASE EVENT DATE: 200810
